FAERS Safety Report 7326447-1 (Version None)
Quarter: 2011Q1

REPORT INFORMATION
  Report Type: 
  Country: None (occurrence: None)
  Receive Date: 20110302
  Receipt Date: 20110203
  Transmission Date: 20110831
  Serious: Yes (Life-Threatening, Hospitalization)
  Sender: FDA-Public Use
  Company Number: NL-JNJFOC-20100607101

PATIENT
  Sex: Female
  Weight: 103 kg

DRUGS (23)
  1. REMICADE [Suspect]
     Route: 042
  2. REMICADE [Suspect]
     Route: 042
  3. FLUVOXAMINE [Concomitant]
  4. IMPORTAL [Concomitant]
     Dosage: 25CC 2 DOSES PER DAY
  5. REMICADE [Suspect]
     Route: 042
  6. REMICADE [Suspect]
     Route: 042
  7. REMICADE [Suspect]
     Route: 042
  8. REMICADE [Suspect]
     Route: 042
  9. EFFEXOR [Suspect]
     Indication: ILL-DEFINED DISORDER
  10. REMICADE [Suspect]
     Route: 042
  11. METOPROLOL [Concomitant]
  12. FUROSEMIDE [Concomitant]
  13. REMICADE [Suspect]
     Indication: COLITIS ULCERATIVE
     Route: 042
  14. REMICADE [Suspect]
     Route: 042
  15. REMICADE [Suspect]
     Route: 042
  16. UNSPECIFIED ANTIDEPRESSANTS [Suspect]
     Indication: ILL-DEFINED DISORDER
  17. REMICADE [Suspect]
     Indication: ANKYLOSING SPONDYLITIS
     Route: 042
  18. NAPROXEN [Suspect]
     Indication: ILL-DEFINED DISORDER
     Dosage: AS NEEDED
  19. REMICADE [Suspect]
     Route: 042
  20. REMICADE [Suspect]
     Route: 042
  21. REMICADE [Suspect]
     Route: 042
  22. SPIRONOLACTONE [Concomitant]
     Dosage: 50-100 MG DAILY
  23. PANTAZOL [Concomitant]

REACTIONS (6)
  - CYTOMEGALOVIRUS INFECTION [None]
  - HEPATIC CIRRHOSIS [None]
  - HEPATITIS [None]
  - HEPATIC FAILURE [None]
  - HERPES ZOSTER [None]
  - NEURALGIA [None]
